FAERS Safety Report 12617449 (Version 1)
Quarter: 2016Q3

REPORT INFORMATION
  Report Type: Spontaneous
  Country: DE (occurrence: DE)
  Receive Date: 20160803
  Receipt Date: 20160803
  Transmission Date: 20161109
  Serious: Yes (Hospitalization, Other)
  Sender: FDA-Public Use
  Company Number: DE-BRISTOL-MYERS SQUIBB COMPANY-BMS-2016-024921

PATIENT
  Age: 61 Year
  Sex: Male
  Weight: 110 kg

DRUGS (1)
  1. SPRYCEL [Suspect]
     Active Substance: DASATINIB
     Indication: CHRONIC MYELOID LEUKAEMIA
     Dosage: UNK
     Route: 048
     Dates: start: 201407

REACTIONS (9)
  - Pleural effusion [Unknown]
  - Dyspnoea [Unknown]
  - Aspiration pleural cavity [Not Recovered/Not Resolved]
  - Pulmonary hypertension [Not Recovered/Not Resolved]
  - Generalised oedema [Unknown]
  - Ascites [Not Recovered/Not Resolved]
  - General physical health deterioration [Unknown]
  - Peritonitis bacterial [Not Recovered/Not Resolved]
  - Pericardial effusion [Unknown]
